FAERS Safety Report 16426365 (Version 3)
Quarter: 2019Q3

REPORT INFORMATION
  Report Type: Spontaneous
  Country: CZ (occurrence: CZ)
  Receive Date: 20190613
  Receipt Date: 20190709
  Transmission Date: 20191004
  Serious: Yes (Death, Other)
  Sender: FDA-Public Use
  Company Number: CZ-JNJFOC-20190612946

PATIENT
  Age: 23 Year
  Sex: Female

DRUGS (27)
  1. OXALIPLATIN. [Suspect]
     Active Substance: OXALIPLATIN
     Indication: METASTATIC GASTRIC CANCER
     Route: 065
  2. BUTYLSCOPOLAMINE [Suspect]
     Active Substance: BUTYLSCOPOLAMINE
     Indication: BREAKTHROUGH PAIN
     Route: 065
     Dates: start: 2016
  3. OXYCODONE HYDROCHLORIDE. [Suspect]
     Active Substance: OXYCODONE HYDROCHLORIDE
     Indication: PAIN
     Route: 065
  4. DUROGESIC [Suspect]
     Active Substance: FENTANYL
     Indication: PAIN
     Route: 062
  5. NALOXONE W/OXYCODONE [Suspect]
     Active Substance: NALOXONE HYDROCHLORIDE\OXYCODONE HYDROCHLORIDE
     Indication: BREAKTHROUGH PAIN
     Dosage: 40/20MG, 1 TABLET IN THE MORNING AND 2 IN THE AFTERNOON
     Route: 065
     Dates: start: 2016
  6. DUROGESIC [Suspect]
     Active Substance: FENTANYL
     Indication: ABDOMINAL PAIN
     Route: 062
     Dates: start: 2015
  7. NALOXONE [Suspect]
     Active Substance: NALOXONE
     Indication: PAIN
     Route: 065
  8. NALOXONE [Suspect]
     Active Substance: NALOXONE
     Route: 065
  9. FENTANYL. [Suspect]
     Active Substance: FENTANYL
     Indication: BREAKTHROUGH PAIN
     Route: 002
  10. OXYCODONE HYDROCHLORIDE. [Suspect]
     Active Substance: OXYCODONE HYDROCHLORIDE
     Route: 065
  11. OXYCODONE HYDROCHLORIDE. [Suspect]
     Active Substance: OXYCODONE HYDROCHLORIDE
     Route: 065
  12. FOLFOX [Concomitant]
     Active Substance: FLUOROURACIL\LEUCOVORIN CALCIUM\OXALIPLATIN
     Indication: GASTRIC CANCER STAGE IV
     Route: 065
  13. DUROGESIC [Suspect]
     Active Substance: FENTANYL
     Indication: BREAKTHROUGH PAIN
     Route: 062
     Dates: start: 2016
  14. NALOXONE [Suspect]
     Active Substance: NALOXONE
     Route: 065
  15. FLUOROURACIL. [Suspect]
     Active Substance: FLUOROURACIL
     Indication: METASTATIC GASTRIC CANCER
     Route: 065
  16. NALOXONE W/OXYCODONE [Suspect]
     Active Substance: NALOXONE HYDROCHLORIDE\OXYCODONE HYDROCHLORIDE
     Dosage: 40/20MG, 2 TABLETS IN THE MORNING AND 2 IN THE AFTERNOON
     Route: 065
     Dates: start: 2017
  17. BUTYLSCOPOLAMINE [Suspect]
     Active Substance: BUTYLSCOPOLAMINE
     Indication: BREAKTHROUGH PAIN
     Route: 065
     Dates: start: 2016
  18. FENTANYL. [Suspect]
     Active Substance: FENTANYL
     Indication: PRODUCT USED FOR UNKNOWN INDICATION
     Route: 006
  19. NALOXONE W/OXYCODONE [Suspect]
     Active Substance: NALOXONE HYDROCHLORIDE\OXYCODONE HYDROCHLORIDE
     Dosage: 20/10MG, EVERY 12 HOURS
     Route: 065
     Dates: start: 2016
  20. FENTANYL. [Suspect]
     Active Substance: FENTANYL
     Indication: BREAKTHROUGH PAIN
     Route: 045
     Dates: start: 2017
  21. RAMUCIRUMAB [Suspect]
     Active Substance: RAMUCIRUMAB
     Indication: METASTATIC GASTRIC CANCER
     Route: 065
     Dates: start: 20160621
  22. PACLITAXEL. [Suspect]
     Active Substance: PACLITAXEL
     Indication: METASTATIC GASTRIC CANCER
     Route: 065
     Dates: start: 20160621
  23. NALOXONE W/OXYCODONE [Suspect]
     Active Substance: NALOXONE HYDROCHLORIDE\OXYCODONE HYDROCHLORIDE
     Dosage: 40/20MG, 1 TABLET IN THE MORNING AND 1 IN THE AFTERNOON
     Route: 065
     Dates: start: 2016
  24. DUROGESIC [Suspect]
     Active Substance: FENTANYL
     Route: 062
     Dates: start: 2015
  25. FOLINIC ACID [Suspect]
     Active Substance: LEUCOVORIN
     Indication: METASTATIC GASTRIC CANCER
     Route: 065
  26. FENTANYL. [Suspect]
     Active Substance: FENTANYL
     Indication: BREAKTHROUGH PAIN
     Route: 060
     Dates: start: 2016, end: 201608
  27. METAMIZOLE [Concomitant]
     Active Substance: METAMIZOLE
     Indication: BREAKTHROUGH PAIN
     Dosage: 5 ML, INFUSIONS IN THE HOME SETTING ONCE TO TWICE DAILY, AS NEEDED
     Route: 042

REACTIONS (11)
  - Metastatic gastric cancer [Fatal]
  - Ileus paralytic [Unknown]
  - Pain [Not Recovered/Not Resolved]
  - Malignant neoplasm progression [Fatal]
  - Drug abuse [Unknown]
  - Overdose [Unknown]
  - Nausea [Unknown]
  - Abdominal pain [Not Recovered/Not Resolved]
  - Hypophagia [Not Recovered/Not Resolved]
  - Vomiting [Not Recovered/Not Resolved]
  - Ascites [Not Recovered/Not Resolved]

NARRATIVE: CASE EVENT DATE: 201602
